FAERS Safety Report 24229185 (Version 2)
Quarter: 2024Q4

REPORT INFORMATION
  Report Type: Report from Study
  Country: US (occurrence: US)
  Receive Date: 20240820
  Receipt Date: 20241128
  Transmission Date: 20250115
  Serious: Yes (Hospitalization, Other)
  Sender: PAREXEL
  Company Number: US-Stemline Therapeutics, Inc.-2024ST001407

PATIENT
  Sex: Female
  Weight: 104 kg

DRUGS (4)
  1. ORSERDU [Suspect]
     Active Substance: ELACESTRANT
     Indication: Breast cancer female
     Dosage: 345 MG, DAILY
     Route: 048
     Dates: start: 20231016
  2. EVEROLIMUS [Suspect]
     Active Substance: EVEROLIMUS
     Indication: Neoplasm malignant
     Dosage: UNK
     Route: 065
  3. LISINOPRIL [Suspect]
     Active Substance: LISINOPRIL
     Indication: Blood pressure measurement
     Dosage: UNK
     Route: 065
  4. AMLODIPINE [Concomitant]
     Active Substance: AMLODIPINE BESYLATE
     Indication: Product used for unknown indication
     Dosage: UNK

REACTIONS (5)
  - Anaphylactic reaction [Unknown]
  - COVID-19 [Unknown]
  - Sinusitis [Unknown]
  - Skin reaction [Unknown]
  - Weight decreased [Unknown]
